FAERS Safety Report 25116680 (Version 3)
Quarter: 2025Q2

REPORT INFORMATION
  Report Type: Other
  Country: GB (occurrence: GB)
  Receive Date: 20250325
  Receipt Date: 20250604
  Transmission Date: 20250716
  Serious: Yes (Other)
  Sender: IPCA
  Company Number: GB-002147023-NVSC2025GB040015

PATIENT

DRUGS (7)
  1. HYDROXYCHLOROQUINE [Suspect]
     Active Substance: HYDROXYCHLOROQUINE
     Indication: Chronic spontaneous urticaria
     Route: 065
  2. HYDROXYCHLOROQUINE [Suspect]
     Active Substance: HYDROXYCHLOROQUINE
     Route: 065
  3. XOLAIR [Suspect]
     Active Substance: OMALIZUMAB
     Indication: Chronic spontaneous urticaria
     Route: 042
  4. XOLAIR [Suspect]
     Active Substance: OMALIZUMAB
     Route: 042
     Dates: start: 2016
  5. DAPSONE [Suspect]
     Active Substance: DAPSONE
     Indication: Chronic spontaneous urticaria
     Route: 065
  6. CYCLOSPORINE [Suspect]
     Active Substance: CYCLOSPORINE
     Indication: Chronic spontaneous urticaria
     Route: 065
  7. METHOTREXATE SODIUM [Suspect]
     Active Substance: METHOTREXATE SODIUM
     Indication: Chronic spontaneous urticaria
     Route: 065

REACTIONS (4)
  - Angioedema [Unknown]
  - Renal impairment [Unknown]
  - Drug ineffective [Unknown]
  - Off label use [Unknown]
